FAERS Safety Report 8909513 (Version 2)
Quarter: 2012Q4

REPORT INFORMATION
  Report Type: Spontaneous
  Country: US (occurrence: None)
  Receive Date: 20121109
  Receipt Date: 20121119
  Transmission Date: 20130627
  Serious: Yes (Death, Life-Threatening, Hospitalization)
  Sender: FDA-Public Use
  Company Number: 2012033882

PATIENT
  Age: 79 Year
  Sex: Male

DRUGS (8)
  1. DESMOPRESSIN ACETATE [Suspect]
     Indication: ATRIAL FIBRILLATION
  2. DESMOPRESSIN ACETATE [Suspect]
     Indication: CORONARY ARTERY DISEASE
  3. DABIGATRAN [Suspect]
     Indication: ATRIAL FIBRILLATION
  4. DABIGATRAN [Suspect]
     Indication: CORONARY ARTERY DISEASE
  5. ASPIRIN [Suspect]
     Indication: ATRIAL FIBRILLATION
  6. ASPIRIN [Suspect]
     Indication: CORONARY ARTERY DISEASE
  7. CLOPIDOGREL [Suspect]
     Indication: ATRIAL FIBRILLATION
  8. CLOPIDOGREL [Suspect]
     Indication: CORONARY ARTERY DISEASE

REACTIONS (17)
  - Epistaxis [None]
  - Melaena [None]
  - Rectal haemorrhage [None]
  - Blood pressure decreased [None]
  - Chest pain [None]
  - Haemoglobin decreased [None]
  - Haematocrit decreased [None]
  - Blood bicarbonate decreased [None]
  - Blood urea increased [None]
  - Creatinine renal clearance decreased [None]
  - Pulseless electrical activity [None]
  - Cardiac arrest [None]
  - Bradycardia [None]
  - Blood creatinine increased [None]
  - Activated partial thromboplastin time prolonged [None]
  - Prothrombin time prolonged [None]
  - Haemorrhage [None]
